FAERS Safety Report 23861054 (Version 8)
Quarter: 2025Q1

REPORT INFORMATION
  Report Type: Report from Study
  Country: US (occurrence: US)
  Receive Date: 20240516
  Receipt Date: 20250321
  Transmission Date: 20250409
  Serious: Yes (Hospitalization, Other)
  Sender: TAKEDA
  Company Number: US-TAKEDA-2024TUS048178

PATIENT
  Age: 47 Year
  Sex: Female
  Weight: 102 kg

DRUGS (35)
  1. HUMAN IMMUNOGLOBULIN G [Suspect]
     Active Substance: HUMAN IMMUNOGLOBULIN G
     Indication: Immunodeficiency common variable
     Dosage: 60 GRAM, Q4WEEKS
     Dates: start: 20230316
  2. HUMAN IMMUNOGLOBULIN G [Suspect]
     Active Substance: HUMAN IMMUNOGLOBULIN G
     Indication: Congenital hypogammaglobulinaemia
     Dosage: 60 GRAM, Q4WEEKS
     Dates: start: 20240425
  3. LEVAQUIN [Suspect]
     Active Substance: LEVOFLOXACIN
     Indication: Product used for unknown indication
  4. ACETAMINOPHEN [Concomitant]
     Active Substance: ACETAMINOPHEN
  5. EPINEPHRINE [Concomitant]
     Active Substance: EPINEPHRINE
  6. JARDIANCE [Concomitant]
     Active Substance: EMPAGLIFLOZIN
  7. FISH OIL [Concomitant]
     Active Substance: FISH OIL
  8. XANAX [Concomitant]
     Active Substance: ALPRAZOLAM
  9. NASACORT [Concomitant]
     Active Substance: TRIAMCINOLONE ACETONIDE
  10. HIZENTRA [Concomitant]
     Active Substance: HUMAN IMMUNOGLOBULIN G
  11. SPIRONOLACTONE [Concomitant]
     Active Substance: SPIRONOLACTONE
  12. SODIUM CHLORIDE [Concomitant]
     Active Substance: SODIUM CHLORIDE
  13. ABILIFY [Concomitant]
     Active Substance: ARIPIPRAZOLE
  14. SYNTHROID [Concomitant]
     Active Substance: LEVOTHYROXINE SODIUM
  15. LAMICTAL [Concomitant]
     Active Substance: LAMOTRIGINE
  16. LIDOCAINE [Concomitant]
     Active Substance: LIDOCAINE
  17. PREVACID [Concomitant]
     Active Substance: LANSOPRAZOLE
  18. EPIPEN [Concomitant]
     Active Substance: EPINEPHRINE
  19. ESTRADIOL [Concomitant]
     Active Substance: ESTRADIOL
  20. ATORVASTATIN [Concomitant]
     Active Substance: ATORVASTATIN
  21. NYSTATIN [Concomitant]
     Active Substance: NYSTATIN
  22. BUSPIRONE HCL [Concomitant]
     Active Substance: BUSPIRONE HYDROCHLORIDE
  23. DIPHENHYDRAMINE HYDROCHLORIDE [Concomitant]
     Active Substance: DIPHENHYDRAMINE HYDROCHLORIDE
  24. ESTRACE [Concomitant]
     Active Substance: ESTRADIOL
  25. SODIUM CHLORIDE [Concomitant]
     Active Substance: SODIUM CHLORIDE
  26. ASPIRIN [Concomitant]
     Active Substance: ASPIRIN
  27. PROZAC [Concomitant]
     Active Substance: FLUOXETINE HYDROCHLORIDE
  28. METFORMIN HYDROCHLORIDE [Concomitant]
     Active Substance: METFORMIN HYDROCHLORIDE
  29. ONDANSETRON HYDROCHLORIDE [Concomitant]
     Active Substance: ONDANSETRON HYDROCHLORIDE
  30. ALPRAZOLAM [Concomitant]
     Active Substance: ALPRAZOLAM
  31. HYDROXYZINE HYDROCHLORIDE [Concomitant]
     Active Substance: HYDROXYZINE HYDROCHLORIDE
  32. LAMOTRIGINE [Concomitant]
     Active Substance: LAMOTRIGINE
  33. CRESTOR [Concomitant]
     Active Substance: ROSUVASTATIN CALCIUM
  34. ATORVASTATIN CALCIUM [Concomitant]
     Active Substance: ATORVASTATIN CALCIUM
  35. NOVOLOG [Concomitant]
     Active Substance: INSULIN ASPART

REACTIONS (10)
  - Vascular device infection [Unknown]
  - Urinary tract infection [Unknown]
  - Cerebrovascular accident [Unknown]
  - Joint dislocation [Unknown]
  - Osteitis [Unknown]
  - Fungal infection [Unknown]
  - Pharyngitis streptococcal [Unknown]
  - Drug hypersensitivity [Unknown]
  - Post procedural complication [Unknown]
  - Inappropriate schedule of product administration [Unknown]

NARRATIVE: CASE EVENT DATE: 20240709
